FAERS Safety Report 16242527 (Version 1)
Quarter: 2019Q2

REPORT INFORMATION
  Report Type: Spontaneous
  Country: GB (occurrence: GB)
  Receive Date: 20190426
  Receipt Date: 20190426
  Transmission Date: 20190711
  Serious: Yes (Other)
  Sender: FDA-Public Use
  Company Number: PHHY2019GB094885

PATIENT
  Age: 33 Year
  Sex: Female
  Weight: 92 kg

DRUGS (1)
  1. PHENOXYMETHYLPENICILLIN [Suspect]
     Active Substance: PENICILLIN V
     Indication: TONSILLITIS
     Dosage: 250 MG, UNK
     Route: 048
     Dates: start: 20190313, end: 20190321

REACTIONS (4)
  - Depression suicidal [Recovering/Resolving]
  - Irritability [Unknown]
  - Crying [Unknown]
  - Emotional disorder [Unknown]

NARRATIVE: CASE EVENT DATE: 20190313
